FAERS Safety Report 23255828 (Version 1)
Quarter: 2023Q4

REPORT INFORMATION
  Report Type: Spontaneous
  Country: DE (occurrence: DE)
  Receive Date: 20231204
  Receipt Date: 20231204
  Transmission Date: 20240110
  Serious: Yes (Other)
  Sender: FDA-Public Use
  Company Number: DE-BRISTOL-MYERS SQUIBB COMPANY-2023-172178

PATIENT
  Age: 61 Year
  Sex: Female

DRUGS (3)
  1. NIVOLUMAB [Suspect]
     Active Substance: NIVOLUMAB
     Indication: Renal cell carcinoma
     Dosage: EVERY 2 WEEKS THEN EVERY 4 WEEKS
     Dates: start: 201605, end: 201911
  2. NIVOLUMAB [Suspect]
     Active Substance: NIVOLUMAB
     Dates: start: 202004
  3. CORTISONE [Suspect]
     Active Substance: CORTISONE
     Indication: Acute kidney injury
     Dates: start: 201912

REACTIONS (2)
  - Acute kidney injury [Recovering/Resolving]
  - Myopathy [Unknown]

NARRATIVE: CASE EVENT DATE: 20191101
